FAERS Safety Report 15482321 (Version 1)
Quarter: 2018Q4

REPORT INFORMATION
  Report Type: Spontaneous
  Country: IT (occurrence: IT)
  Receive Date: 20181010
  Receipt Date: 20181010
  Transmission Date: 20190205
  Serious: Yes (Hospitalization, Other)
  Sender: FDA-Public Use
  Company Number: IT-PFIZER INC-2018408024

PATIENT
  Age: 98 Year
  Sex: Female

DRUGS (11)
  1. GLYCERYL TRINITRATE [Concomitant]
     Active Substance: NITROGLYCERIN
     Dosage: UNK
  2. PLAVIX [Concomitant]
     Active Substance: CLOPIDOGREL BISULFATE
     Dosage: UNK
  3. CORDARONE [Suspect]
     Active Substance: AMIODARONE HYDROCHLORIDE
     Indication: ATRIAL FIBRILLATION
     Dosage: 1 DF, 1X/DAY
     Route: 048
     Dates: start: 20180101, end: 20180812
  4. VALPRESSION [Concomitant]
     Active Substance: VALSARTAN
     Dosage: 160 MG, UNK
  5. LASIX [Concomitant]
     Active Substance: FUROSEMIDE
     Dosage: 25 MG, UNK
  6. COLECALCIFEROL [Concomitant]
     Active Substance: CHOLECALCIFEROL
     Dosage: UNK
  7. VALPRESSION [Concomitant]
     Active Substance: VALSARTAN
     Dosage: 80 MG, UNK
  8. NORMIX [Concomitant]
     Active Substance: RIFAXIMIN
     Dosage: UNK
  9. RETACRIT [Concomitant]
     Active Substance: EPOETIN ALFA-EPBX
     Dosage: UNK
  10. ADENURIC [Concomitant]
     Active Substance: FEBUXOSTAT
     Dosage: 80 MG, UNK
  11. OMEPRAZEN [OMEPRAZOLE SODIUM] [Concomitant]
     Dosage: 20 MG, UNK

REACTIONS (2)
  - Electrocardiogram repolarisation abnormality [Unknown]
  - Bradycardia [Unknown]

NARRATIVE: CASE EVENT DATE: 20180812
